FAERS Safety Report 12402073 (Version 2)
Quarter: 2016Q2

REPORT INFORMATION
  Report Type: Spontaneous
  Country: US (occurrence: US)
  Receive Date: 20160525
  Receipt Date: 20160527
  Transmission Date: 20160815
  Serious: No
  Sender: FDA-Public Use
  Company Number: US-SA-2016SA000734

PATIENT
  Age: 64 Year
  Sex: Female
  Weight: 250 kg

DRUGS (3)
  1. NOVOLOG [Concomitant]
     Active Substance: INSULIN ASPART
  2. LANTUS SOLOSTAR [Suspect]
     Active Substance: INSULIN GLARGINE
     Indication: TYPE 2 DIABETES MELLITUS
     Dosage: DOSE:65 UNIT(S)
     Route: 065
     Dates: start: 2013
  3. SOLOSTAR [Concomitant]
     Active Substance: DEVICE
     Dates: start: 2013

REACTIONS (3)
  - Cough [Unknown]
  - Asthma [Unknown]
  - Drug administration error [Unknown]
